FAERS Safety Report 7365047-4 (Version None)
Quarter: 2011Q1

REPORT INFORMATION
  Report Type: 
  Country: None (occurrence: None)
  Receive Date: 20110321
  Receipt Date: 20110314
  Transmission Date: 20110831
  Serious: Yes (Death)
  Sender: FDA-Public Use
  Company Number: JP-GENENTECH-311785

PATIENT
  Sex: Male

DRUGS (7)
  1. CYCLOPHOSPHAMIDE [Concomitant]
     Indication: PRODUCT USED FOR UNKNOWN INDICATION
     Dosage: 750 MG, UNK
     Dates: start: 20101207, end: 20101207
  2. CALONAL [Concomitant]
     Indication: PREMEDICATION
     Dosage: 200 MG, X1
     Route: 048
     Dates: start: 20101220, end: 20101220
  3. OMEPRAZOL AL [Concomitant]
     Indication: PROPHYLAXIS
     Dosage: 20 MG, QD
     Route: 048
     Dates: start: 20101218, end: 20101220
  4. RITUXAN [Suspect]
     Indication: LYMPHOMA
     Dosage: 75 MG, X1
     Route: 042
     Dates: start: 20101220, end: 20101220
  5. PREDNISOLONE [Concomitant]
     Indication: PRODUCT USED FOR UNKNOWN INDICATION
     Dosage: 60 MG, UNK
     Dates: start: 20101119, end: 20101211
  6. DOXORUBICIN HCL [Concomitant]
     Indication: PRODUCT USED FOR UNKNOWN INDICATION
     Dosage: 50 MG, UNK
     Dates: start: 20101119, end: 20101207
  7. SAXIZON [Concomitant]
     Indication: PREMEDICATION
     Dosage: 100 MG, X1
     Route: 042
     Dates: start: 20101220, end: 20101220

REACTIONS (2)
  - NAUSEA [None]
  - DEATH [None]
